FAERS Safety Report 16367898 (Version 1)
Quarter: 2019Q2

REPORT INFORMATION
  Report Type: Report from Study
  Country: None (occurrence: US)
  Receive Date: 20190529
  Receipt Date: 20190529
  Transmission Date: 20190711
  Serious: Yes (Hospitalization, Other)
  Sender: FDA-Public Use
  Company Number: US-ABBVIE-19S-163-2796222-00

PATIENT
  Age: 80 Year
  Sex: Male

DRUGS (1)
  1. CREON [Suspect]
     Active Substance: PANCRELIPASE AMYLASE\PANCRELIPASE LIPASE\PANCRELIPASE PROTEASE
     Indication: PRODUCT USED FOR UNKNOWN INDICATION
     Route: 048

REACTIONS (20)
  - Abdominal distension [Unknown]
  - Fatigue [Unknown]
  - Hypertension [Unknown]
  - Cerebrovascular accident [Unknown]
  - Seizure [Unknown]
  - Insomnia [Unknown]
  - Hyperthyroidism [Unknown]
  - Fall [Unknown]
  - Steatorrhoea [Unknown]
  - Chronic obstructive pulmonary disease [Unknown]
  - Hyperlipidaemia [Unknown]
  - Eye operation [Unknown]
  - Irritable bowel syndrome [Unknown]
  - Diarrhoea [Unknown]
  - Weight decreased [Unknown]
  - Diabetes mellitus [Unknown]
  - Abnormal faeces [Unknown]
  - Pancreatic failure [Unknown]
  - Anxiety disorder [Unknown]
  - Peripheral vascular disorder [Unknown]

NARRATIVE: CASE EVENT DATE: 20180607
